FAERS Safety Report 8053889-1 (Version None)
Quarter: 2012Q1

REPORT INFORMATION
  Report Type: 
  Country: None (occurrence: None)
  Receive Date: 20120118
  Receipt Date: 20120113
  Transmission Date: 20120608
  Serious: Yes (Other)
  Sender: FDA-Public Use
  Company Number: US-PFIZER INC-2012012774

PATIENT
  Sex: Male

DRUGS (3)
  1. XANAX [Suspect]
     Dosage: UNK
  2. OXYCONTIN [Suspect]
     Dosage: UNK
  3. RITALIN [Suspect]
     Dosage: UNK

REACTIONS (2)
  - DRUG ABUSE [None]
  - INCORRECT ROUTE OF DRUG ADMINISTRATION [None]
